FAERS Safety Report 9464249 (Version 1)
Quarter: 2013Q3

REPORT INFORMATION
  Report Type: Spontaneous
  Country: US (occurrence: US)
  Receive Date: 20130819
  Receipt Date: 20130819
  Transmission Date: 20140515
  Serious: Yes (Hospitalization, Other)
  Sender: FDA-Public Use
  Company Number: US-ELI_LILLY_AND_COMPANY-US201308003951

PATIENT
  Age: 54 Year
  Sex: Female

DRUGS (1)
  1. HUMALOG LISPRO [Suspect]

REACTIONS (3)
  - Diabetic ketoacidosis [Recovered/Resolved]
  - Blood glucose increased [Recovering/Resolving]
  - Blood glucose increased [Unknown]
